FAERS Safety Report 4490352-9 (Version None)
Quarter: 2004Q3

REPORT INFORMATION
  Report Type: 
  Country: None (occurrence: None)
  Receive Date: 20040921
  Receipt Date: 20031202
  Transmission Date: 20050211
  Serious: Yes (Hospitalization)
  Sender: FDA-Public Use
  Company Number: 163-20785-03120106

PATIENT
  Age: 61 Year
  Sex: Male
  Weight: 83.6 kg

DRUGS (19)
  1. THALOMID [Suspect]
     Indication: ASTROCYTOMA
     Dosage: SEE IMAGE
     Route: 048
     Dates: start: 20031119, end: 20031125
  2. THALOMID [Suspect]
     Indication: GLIOBLASTOMA
     Dosage: SEE IMAGE
     Route: 048
     Dates: start: 20031119, end: 20031125
  3. THALOMID [Suspect]
     Indication: ASTROCYTOMA
     Dosage: SEE IMAGE
     Route: 048
     Dates: start: 20031126, end: 20031126
  4. THALOMID [Suspect]
     Indication: GLIOBLASTOMA
     Dosage: SEE IMAGE
     Route: 048
     Dates: start: 20031126, end: 20031126
  5. THALOMID [Suspect]
     Indication: ASTROCYTOMA
     Dosage: SEE IMAGE
     Route: 048
     Dates: start: 20031127
  6. THALOMID [Suspect]
     Indication: GLIOBLASTOMA
     Dosage: SEE IMAGE
     Route: 048
     Dates: start: 20031127
  7. CPT-11 (IRINOTECAN) [Suspect]
     Indication: ASTROCYTOMA
     Dosage: 125 MG/M2 ; 100 MG/M2  : EVERY WEEK TIMES FOUR WEEKS, INTRAVENOUS
     Route: 042
     Dates: start: 20031119, end: 20031125
  8. CPT-11 (IRINOTECAN) [Suspect]
     Indication: GLIOBLASTOMA
     Dosage: 125 MG/M2 ; 100 MG/M2  : EVERY WEEK TIMES FOUR WEEKS, INTRAVENOUS
     Route: 042
     Dates: start: 20031119, end: 20031125
  9. CPT-11 (IRINOTECAN) [Suspect]
     Indication: ASTROCYTOMA
     Dosage: 125 MG/M2 ; 100 MG/M2  : EVERY WEEK TIMES FOUR WEEKS, INTRAVENOUS
     Route: 042
     Dates: start: 20031202
  10. CPT-11 (IRINOTECAN) [Suspect]
     Indication: GLIOBLASTOMA
     Dosage: 125 MG/M2 ; 100 MG/M2  : EVERY WEEK TIMES FOUR WEEKS, INTRAVENOUS
     Route: 042
     Dates: start: 20031202
  11. KEPPRA [Concomitant]
  12. LOPERAMIDE HCL [Concomitant]
  13. COUMADIN [Concomitant]
  14. ZETIA [Concomitant]
  15. LIPITOR [Concomitant]
  16. DECADRON [Concomitant]
  17. INSULIN [Concomitant]
  18. LOMOTIL [Concomitant]
  19. TYLENOL [Concomitant]

REACTIONS (18)
  - APHASIA [None]
  - APRAXIA [None]
  - ASTHENIA [None]
  - BRAIN COMPRESSION [None]
  - COGNITIVE DISORDER [None]
  - CONFUSIONAL STATE [None]
  - DEEP VEIN THROMBOSIS [None]
  - FAECAL INCONTINENCE [None]
  - GAIT DISTURBANCE [None]
  - HAEMATURIA [None]
  - HEADACHE [None]
  - HEMIANOPIA [None]
  - HYPERHIDROSIS [None]
  - INCONTINENCE [None]
  - LABORATORY TEST ABNORMAL [None]
  - PANCYTOPENIA [None]
  - PYREXIA [None]
  - SUBDURAL EFFUSION [None]
